FAERS Safety Report 7348460-0 (Version None)
Quarter: 2011Q1

REPORT INFORMATION
  Report Type: 
  Country: None (occurrence: None)
  Receive Date: 20110314
  Receipt Date: 20110310
  Transmission Date: 20110831
  Serious: Yes (Death, Hospitalization, Other)
  Sender: FDA-Public Use
  Company Number: US-AMGEN-USASP2011011852

PATIENT
  Age: 81 Year
  Sex: Female
  Weight: 77.551 kg

DRUGS (15)
  1. NPLATE [Suspect]
     Indication: IDIOPATHIC THROMBOCYTOPENIC PURPURA
     Dosage: 75 A?G, QWK
     Route: 058
     Dates: start: 20110223, end: 20110223
  2. CARDIZEM [Concomitant]
  3. CYCLOBENZAPRINE [Concomitant]
  4. ZANTAC                             /00550801/ [Concomitant]
  5. ATENOLOL [Concomitant]
  6. AMLODIPINE [Concomitant]
  7. SYNTHROID [Concomitant]
  8. POTASSIUM CHLORIDE [Concomitant]
  9. CORTICOSTEROIDS [Concomitant]
     Dosage: UNK
  10. VANCOMYCIN [Concomitant]
  11. LASIX [Concomitant]
  12. SIMVASTATIN [Concomitant]
  13. TAMSULOSIN [Concomitant]
  14. PREDNISONE [Concomitant]
  15. METFORMIN [Concomitant]

REACTIONS (7)
  - RENAL FAILURE [None]
  - PANCYTOPENIA [None]
  - MARROW HYPERPLASIA [None]
  - POST PROCEDURAL COMPLICATION [None]
  - STAPHYLOCOCCAL INFECTION [None]
  - INTESTINAL ISCHAEMIA [None]
  - SEPSIS [None]
